FAERS Safety Report 4751383-4 (Version None)
Quarter: 2005Q3

REPORT INFORMATION
  Report Type: 
  Country: None (occurrence: None)
  Receive Date: 20050822
  Receipt Date: 20050811
  Transmission Date: 20060218
  Serious: Yes (Disabling)
  Sender: FDA-Public Use
  Company Number: HQWYE893212AUG05

PATIENT
  Age: 31 Year
  Sex: Female

DRUGS (2)
  1. EFFEXOR [Suspect]
     Indication: DEPRESSION
     Dosage: 'SEE IMAGE
     Dates: end: 20050701
  2. EFFEXOR [Suspect]
     Indication: DEPRESSION
     Dosage: 'SEE IMAGE
     Dates: start: 20050701

REACTIONS (4)
  - AMNESIA [None]
  - DRUG WITHDRAWAL SYNDROME [None]
  - EMOTIONAL DISTRESS [None]
  - TREATMENT NONCOMPLIANCE [None]
